FAERS Safety Report 20705801 (Version 4)
Quarter: 2022Q4

REPORT INFORMATION
  Report Type: Spontaneous
  Country: US (occurrence: US)
  Receive Date: 20220413
  Receipt Date: 20221216
  Transmission Date: 20230113
  Serious: Yes (Hospitalization, Other)
  Sender: FDA-Public Use
  Company Number: US-KOREA IPSEN Pharma-2022-09961

PATIENT
  Age: 39 Year
  Sex: Female

DRUGS (9)
  1. DYSPORT [Suspect]
     Active Substance: ABOBOTULINUMTOXINA
     Indication: Skin wrinkling
     Dosage: 72 IU
     Route: 065
     Dates: start: 20220301, end: 20220301
  2. DYSPORT [Suspect]
     Active Substance: ABOBOTULINUMTOXINA
     Indication: Skin wrinkling
  3. DYSPORT [Suspect]
     Active Substance: ABOBOTULINUMTOXINA
     Indication: Skin wrinkling
  4. DYSPORT [Suspect]
     Active Substance: ABOBOTULINUMTOXINA
     Indication: Off label use
  5. NALTREXONE [Concomitant]
     Active Substance: NALTREXONE
     Dates: start: 2017
  6. DULOXETINE [Concomitant]
     Active Substance: DULOXETINE
  7. CYMBALTA [Concomitant]
     Active Substance: DULOXETINE HYDROCHLORIDE
     Dates: start: 2017
  8. TAZORAC [Concomitant]
     Active Substance: TAZAROTENE
     Dates: start: 2019
  9. ACZONE [Concomitant]
     Active Substance: DAPSONE
     Dates: start: 2018

REACTIONS (36)
  - Swelling face [Not Recovered/Not Resolved]
  - Malaise [Not Recovered/Not Resolved]
  - Fatigue [Not Recovered/Not Resolved]
  - Headache [Not Recovered/Not Resolved]
  - Asthenia [Not Recovered/Not Resolved]
  - Influenza like illness [Not Recovered/Not Resolved]
  - Cerebrovascular accident [Not Recovered/Not Resolved]
  - Botulism [Not Recovered/Not Resolved]
  - Neuromuscular toxicity [Not Recovered/Not Resolved]
  - Head discomfort [Not Recovered/Not Resolved]
  - Ear discomfort [Not Recovered/Not Resolved]
  - Tinnitus [Not Recovered/Not Resolved]
  - Vision blurred [Not Recovered/Not Resolved]
  - Ear pain [Not Recovered/Not Resolved]
  - Hyperacusis [Not Recovered/Not Resolved]
  - Photosensitivity reaction [Not Recovered/Not Resolved]
  - Dysuria [Not Recovered/Not Resolved]
  - Dry mouth [Not Recovered/Not Resolved]
  - Thirst [Not Recovered/Not Resolved]
  - Confusional state [Not Recovered/Not Resolved]
  - Eyelid ptosis [Not Recovered/Not Resolved]
  - Brow ptosis [Not Recovered/Not Resolved]
  - Facial pain [Not Recovered/Not Resolved]
  - Palpitations [Not Recovered/Not Resolved]
  - Pruritus [Not Recovered/Not Resolved]
  - Neck pain [Not Recovered/Not Resolved]
  - Muscular weakness [Not Recovered/Not Resolved]
  - Neuralgia [Not Recovered/Not Resolved]
  - Tinnitus [Not Recovered/Not Resolved]
  - Muscle atrophy [Not Recovered/Not Resolved]
  - Food allergy [Not Recovered/Not Resolved]
  - Depression [Not Recovered/Not Resolved]
  - Anxiety [Not Recovered/Not Resolved]
  - Alopecia [Not Recovered/Not Resolved]
  - Depersonalisation/derealisation disorder [Not Recovered/Not Resolved]
  - Off label use [Unknown]

NARRATIVE: CASE EVENT DATE: 20220301
